FAERS Safety Report 25634287 (Version 1)
Quarter: 2025Q3

REPORT INFORMATION
  Report Type: Spontaneous
  Country: EU (occurrence: EU)
  Receive Date: 20250801
  Receipt Date: 20250801
  Transmission Date: 20251020
  Serious: Yes (Other)
  Sender: BAUSCH AND LOMB
  Company Number: EU-AMGEN-DEUSP2025144637

PATIENT
  Age: 72 Year
  Sex: Male

DRUGS (9)
  1. DEXAMETHASONE [Suspect]
     Active Substance: DEXAMETHASONE
     Indication: Plasma cell myeloma
     Route: 065
     Dates: start: 202406
  2. KYPROLIS [Suspect]
     Active Substance: CARFILZOMIB
     Indication: Plasma cell myeloma
     Route: 065
     Dates: start: 202406
  3. KYPROLIS [Suspect]
     Active Substance: CARFILZOMIB
     Indication: Off label use
     Route: 065
     Dates: start: 20250107
  4. KYPROLIS [Suspect]
     Active Substance: CARFILZOMIB
     Route: 065
  5. KYPROLIS [Suspect]
     Active Substance: CARFILZOMIB
     Route: 065
  6. ISATUXIMAB [Suspect]
     Active Substance: ISATUXIMAB
     Indication: Plasma cell myeloma
     Route: 065
     Dates: start: 202406
  7. ISATUXIMAB [Suspect]
     Active Substance: ISATUXIMAB
     Route: 065
     Dates: start: 20250107
  8. LENALIDOMIDE [Suspect]
     Active Substance: LENALIDOMIDE
     Indication: Plasma cell myeloma
     Route: 065
     Dates: start: 202406
  9. LENALIDOMIDE [Suspect]
     Active Substance: LENALIDOMIDE
     Route: 065
     Dates: start: 20250107

REACTIONS (2)
  - Haemorrhage intracranial [Unknown]
  - Off label use [Unknown]

NARRATIVE: CASE EVENT DATE: 20240601
